FAERS Safety Report 16363735 (Version 2)
Quarter: 2019Q3

REPORT INFORMATION
  Report Type: Spontaneous
  Country: US (occurrence: US)
  Receive Date: 20190528
  Receipt Date: 20190820
  Transmission Date: 20191004
  Serious: Yes (Other)
  Sender: FDA-Public Use
  Company Number: US-ENDO PHARMACEUTICALS INC-2019-104855

PATIENT
  Age: 8 Year
  Sex: Female

DRUGS (1)
  1. VANTAS [Suspect]
     Active Substance: HISTRELIN ACETATE
     Indication: PRECOCIOUS PUBERTY
     Dosage: 1 IMPLANT, UNKNOWN
     Route: 065
     Dates: start: 20181219, end: 20190123

REACTIONS (4)
  - Depression [Unknown]
  - Product dispensing error [Recovered/Resolved]
  - Suicidal ideation [Unknown]
  - Wrong product administered [Recovered/Resolved]

NARRATIVE: CASE EVENT DATE: 20181219
